FAERS Safety Report 4588689-8 (Version None)
Quarter: 2005Q1

REPORT INFORMATION
  Report Type: 
  Country: None (occurrence: None)
  Receive Date: 20050214
  Receipt Date: 20050214
  Transmission Date: 20050727
  Serious: Yes (Hospitalization, Other)
  Sender: FDA-Public Use
  Company Number: None

PATIENT
  Age: 73 Year
  Sex: Female
  Weight: 77 kg

DRUGS (16)
  1. ENOXAPARIN [Suspect]
     Indication: PERIPHERAL VASCULAR DISORDER
     Dosage: 70 MG SQ Q 12H
     Route: 058
     Dates: start: 20041201, end: 20041208
  2. ENOXAPARIN [Suspect]
     Indication: PERIPHERAL VASCULAR DISORDER
     Dosage: 70 MG SQ Q 12H
     Route: 058
     Dates: start: 20041128
  3. PLAVIX [Suspect]
     Indication: PERIPHERAL VASCULAR DISORDER
     Dosage: 75 MG PO DAILY
     Route: 048
     Dates: start: 20041201, end: 20041208
  4. XALATAN OPHTH [Concomitant]
  5. GABAPENTIN [Concomitant]
  6. CORTEF [Concomitant]
  7. ZOCOR [Concomitant]
  8. NEXIUM [Concomitant]
  9. VERAPAMIL [Concomitant]
  10. HYDRALAZINE [Concomitant]
  11. LEVOTHROID [Concomitant]
  12. COUMADIN [Concomitant]
  13. SINGULAIR [Concomitant]
  14. MOBIC [Concomitant]
  15. CATAPRES [Concomitant]
  16. ADVAIR DISKUS 100/50 [Concomitant]

REACTIONS (1)
  - THROMBOCYTOPENIA [None]
